FAERS Safety Report 4865280-7 (Version None)
Quarter: 2005Q4

REPORT INFORMATION
  Report Type: 
  Country: None (occurrence: None)
  Receive Date: 20051223
  Receipt Date: 20050725
  Transmission Date: 20060501
  Serious: Yes (Life-Threatening, Hospitalization)
  Sender: FDA-Public Use
  Company Number: CA-SANOFI-SYNTHELABO-A01200505230

PATIENT
  Age: 80 Year
  Sex: Female

DRUGS (12)
  1. PLAVIX [Suspect]
     Indication: PROPHYLAXIS
     Dosage: IRREGULAR INTAKE BEFORE INFARCTION
     Route: 048
     Dates: start: 20050101
  2. PLAVIX [Suspect]
     Dosage: 75 MG EVERY OTHER DAY, AND THEN TO 75 MG EVERY 3 OR 4 DAYS
     Route: 048
     Dates: start: 20050701
  3. LOSARTAN POTASSIUM AND HYDROCHLOROTHIAZIDE [Suspect]
     Route: 048
  4. LIPITOR [Concomitant]
     Indication: BLOOD CHOLESTEROL
     Route: 048
  5. ASPIRIN [Concomitant]
     Indication: DRUG USE FOR UNKNOWN INDICATION
     Route: 048
  6. OCUVITE [Concomitant]
     Indication: EYE DISORDER
     Dosage: UNIT
     Route: 048
  7. CELEBREX [Concomitant]
     Indication: ARTHRITIS
     Dosage: AS NEEDED UNK
     Route: 048
  8. VIOXX [Concomitant]
     Indication: ARTHRITIS
     Dosage: AS NEEDED UNK
     Route: 048
  9. UNKNOWN [Concomitant]
     Indication: PALPITATIONS
     Dosage: AS NEEDED UNK
     Route: 048
  10. FELDENE [Concomitant]
     Indication: ARTHRITIS
     Dosage: UNK
     Route: 048
  11. ST JOHN'S WORT [Concomitant]
     Indication: SLEEP DISORDER
     Dosage: AS NEEDED UNK
     Route: 048
  12. MORPHINE [Concomitant]
     Indication: PAIN
     Dosage: AS NEEDED UNK
     Route: 048

REACTIONS (10)
  - ANURIA [None]
  - CONTUSION [None]
  - HAEMATOMA [None]
  - INTENTIONAL DRUG MISUSE [None]
  - LIPAEMIA RETINALIS [None]
  - MYOCARDIAL INFARCTION [None]
  - PARAESTHESIA [None]
  - PRURITUS [None]
  - RENAL PAIN [None]
  - VISUAL ACUITY REDUCED [None]
